FAERS Safety Report 6423360-9 (Version None)
Quarter: 2009Q4

REPORT INFORMATION
  Report Type: 
  Country: None (occurrence: None)
  Receive Date: 20091102
  Receipt Date: 20091030
  Transmission Date: 20100525
  Serious: Yes (Other)
  Sender: FDA-Public Use
  Company Number: FR-PFIZER INC-2009230807

PATIENT
  Sex: Female

DRUGS (1)
  1. TRIFLUCAN [Suspect]
     Dosage: UNK
     Dates: start: 20090527

REACTIONS (3)
  - APHTHOUS STOMATITIS [None]
  - DRUG INEFFECTIVE [None]
  - EATING DISORDER [None]
